FAERS Safety Report 22127200 (Version 7)
Quarter: 2023Q4

REPORT INFORMATION
  Report Type: Spontaneous
  Country: US (occurrence: US)
  Receive Date: 20230322
  Receipt Date: 20231027
  Transmission Date: 20240109
  Serious: Yes (Hospitalization, Other)
  Sender: FDA-Public Use
  Company Number: US-KARYOPHARM-2023KPT000336

PATIENT

DRUGS (16)
  1. XPOVIO [Suspect]
     Active Substance: SELINEXOR
     Indication: Plasma cell myeloma
     Dosage: 60 MG, WEEKLY
     Route: 048
     Dates: start: 20221230
  2. POMALYST [Concomitant]
     Active Substance: POMALIDOMIDE
     Dosage: 2 MG, WEEKLY (3 WEEKS ON AND 1 WEEK OFF)
  3. ELIQUIS [Concomitant]
     Active Substance: APIXABAN
  4. CYMBALTA [Concomitant]
     Active Substance: DULOXETINE HYDROCHLORIDE
  5. PANTOPRAZOLE SODIUM [Concomitant]
     Active Substance: PANTOPRAZOLE SODIUM
  6. METOPROLOL SUCCINATE [Concomitant]
     Active Substance: METOPROLOL SUCCINATE
  7. LYRICA [Concomitant]
     Active Substance: PREGABALIN
  8. ISOSORBIDE MONONITRATE [Concomitant]
     Active Substance: ISOSORBIDE MONONITRATE
  9. LEVOTHYROXINE SODIUM [Concomitant]
     Active Substance: LEVOTHYROXINE SODIUM
  10. FUROSEMIDE [Concomitant]
     Active Substance: FUROSEMIDE
  11. ACYCLOVIR [Concomitant]
     Active Substance: ACYCLOVIR
  12. TRAMADOL HCL [Concomitant]
     Active Substance: TRAMADOL HYDROCHLORIDE
  13. NITROGLYCERIN LINGUAL [Concomitant]
     Active Substance: NITROGLYCERIN
  14. RANEXA [Concomitant]
     Active Substance: RANOLAZINE
  15. HYDROCODONE BITARTRATE AND ACETAMINOPHEN [Concomitant]
     Active Substance: ACETAMINOPHEN\HYDROCODONE BITARTRATE
  16. OXYBUTYNIN [Concomitant]
     Active Substance: OXYBUTYNIN

REACTIONS (21)
  - Deafness [Unknown]
  - Infection [Unknown]
  - Lower limb fracture [Unknown]
  - Urinary incontinence [Unknown]
  - Dry mouth [Unknown]
  - Somnolence [Unknown]
  - Blood pressure increased [Unknown]
  - Back pain [Unknown]
  - Visual impairment [Unknown]
  - Lacrimation increased [Unknown]
  - Ageusia [Unknown]
  - Ocular discomfort [Unknown]
  - Hot flush [Unknown]
  - Constipation [Not Recovered/Not Resolved]
  - Nausea [Not Recovered/Not Resolved]
  - Fatigue [Unknown]
  - Asthenia [Unknown]
  - Dyspnoea [Not Recovered/Not Resolved]
  - Dizziness [Not Recovered/Not Resolved]
  - Decreased appetite [Not Recovered/Not Resolved]
  - Vision blurred [Unknown]

NARRATIVE: CASE EVENT DATE: 20230101
